FAERS Safety Report 19225472 (Version 1)
Quarter: 2021Q2

REPORT INFORMATION
  Report Type: Spontaneous
  Country: CN (occurrence: CN)
  Receive Date: 20210505
  Receipt Date: 20210505
  Transmission Date: 20210717
  Serious: Yes (Other)
  Sender: FDA-Public Use
  Company Number: CN-BAXTER-2021BAX009307

PATIENT
  Age: 4 Year
  Sex: Female
  Weight: 10.3 kg

DRUGS (10)
  1. VINCRISTINE SULFATE. [Suspect]
     Active Substance: VINCRISTINE SULFATE
     Dosage: VINCRISTINE SULFATE 1 MG + 0.9% SODIUM CHLORIDE INJECTION 5ML
     Route: 042
     Dates: start: 20210330, end: 20210330
  2. ENDOXAN [Suspect]
     Active Substance: CYCLOPHOSPHAMIDE
     Indication: EPENDYMOMA
     Dosage: CYCLOPHOSPHAMIDE 0.5 G + 0.9% SODIUM CHLORIDE INJECTION 250ML
     Route: 041
     Dates: start: 20210322, end: 20210323
  3. VINCRISTINE SULFATE. [Suspect]
     Active Substance: VINCRISTINE SULFATE
     Indication: EPENDYMOMA
     Dosage: VINCRISTINE SULFATE 1 MG + 0.9% SODIUM CHLORIDE INJECTION 5ML
     Route: 042
     Dates: start: 20210322, end: 20210322
  4. SODIUM CHLORIDE. [Suspect]
     Active Substance: SODIUM CHLORIDE
     Indication: MEDICATION DILUTION
     Dosage: VINCRISTINE SULFATE 1 MG + 0.9% SODIUM CHLORIDE INJECTION 5ML
     Route: 042
     Dates: start: 20210322, end: 20210322
  5. ETOPOSIDE. [Suspect]
     Active Substance: ETOPOSIDE
     Indication: EPENDYMOMA
     Dosage: ETOPOSIDE 0.07G + 0.9% SODIUM CHLORIDE INJECTION 300ML
     Route: 041
     Dates: start: 20210322, end: 20210322
  6. ETOPOSIDE. [Suspect]
     Active Substance: ETOPOSIDE
     Dosage: ETOPOSIDE 0.07G + 0.9% SODIUM CHLORIDE INJECTION 300ML
     Route: 041
     Dates: start: 20210324, end: 20210324
  7. SODIUM CHLORIDE. [Suspect]
     Active Substance: SODIUM CHLORIDE
     Dosage: VINCRISTINE SULFATE 1 MG + 0.9% SODIUM CHLORIDE INJECTION 5ML
     Route: 042
     Dates: start: 20210330, end: 20210330
  8. SODIUM CHLORIDE. [Suspect]
     Active Substance: SODIUM CHLORIDE
     Indication: MEDICATION DILUTION
     Dosage: ETOPOSIDE 0.07G + 0.9% SODIUM CHLORIDE INJECTION 300ML
     Route: 041
     Dates: start: 20210322, end: 20210322
  9. 0.9% SODIUM CHLORIDE INJECTION [Suspect]
     Active Substance: SODIUM CHLORIDE
     Indication: MEDICATION DILUTION
     Dosage: CYCLOPHOSPHAMIDE 0.5 G + 0.9% SODIUM CHLORIDE INJECTION 250ML
     Route: 041
     Dates: start: 20210322, end: 20210323
  10. SODIUM CHLORIDE. [Suspect]
     Active Substance: SODIUM CHLORIDE
     Dosage: ETOPOSIDE 0.07G + 0.9% SODIUM CHLORIDE INJECTION 300ML
     Route: 041
     Dates: start: 20210324, end: 20210324

REACTIONS (5)
  - Lymphocyte count decreased [Recovered/Resolved]
  - Myelosuppression [Recovered/Resolved]
  - Granulocytopenia [Recovered/Resolved]
  - Sepsis [Recovered/Resolved]
  - White blood cell count decreased [Recovered/Resolved]

NARRATIVE: CASE EVENT DATE: 20210331
